FAERS Safety Report 26145404 (Version 2)
Quarter: 2025Q4

REPORT INFORMATION
  Report Type: Report from Study
  Country: GB (occurrence: GB)
  Receive Date: 20251211
  Receipt Date: 20251221
  Transmission Date: 20260117
  Serious: Yes (Hospitalization, Other)
  Sender: TAKEDA
  Company Number: GB-TAKEDA-2025TUS112746

PATIENT
  Age: 35 Year
  Sex: Male

DRUGS (3)
  1. VEDOLIZUMAB [Suspect]
     Active Substance: VEDOLIZUMAB
     Indication: Colitis ulcerative
     Dosage: 108 MILLIGRAM, Q2WEEKS
     Dates: start: 20250915
  2. VEDOLIZUMAB [Suspect]
     Active Substance: VEDOLIZUMAB
  3. PREDNISONE [Concomitant]
     Active Substance: PREDNISONE
     Dosage: 30 MILLIGRAM, QD

REACTIONS (3)
  - Colitis ulcerative [Not Recovered/Not Resolved]
  - Photophobia [Unknown]
  - Nausea [Unknown]
